FAERS Safety Report 7970683-8 (Version None)
Quarter: 2011Q4

REPORT INFORMATION
  Report Type: 
  Country: None (occurrence: None)
  Receive Date: 20111212
  Receipt Date: 20111208
  Transmission Date: 20120403
  Serious: Yes (Life-Threatening)
  Sender: FDA-Public Use
  Company Number: PHHY2011GB107131

PATIENT
  Age: 29 Year
  Sex: Male
  Weight: 45 kg

DRUGS (5)
  1. OLANZAPINE [Concomitant]
     Dates: start: 20110905, end: 20110905
  2. AMOXICILLIN [Concomitant]
     Dates: start: 20111110, end: 20111117
  3. ACETAMINOPHEN [Concomitant]
     Dates: start: 20111116, end: 20111121
  4. ACETAMINOPHEN AND CODEINE PHOSPHATE [Suspect]
     Dates: start: 20111129
  5. METHADONE HCL [Concomitant]
     Dates: start: 20111108

REACTIONS (1)
  - THYROID CANCER [None]
